FAERS Safety Report 5227588-5 (Version None)
Quarter: 2007Q1

REPORT INFORMATION
  Report Type: 
  Country: None (occurrence: None)
  Receive Date: 20070202
  Receipt Date: 20070125
  Transmission Date: 20070707
  Serious: Yes (Hospitalization, Other)
  Sender: FDA-Public Use
  Company Number: US-ELI_LILLY_AND_COMPANY-US200701006248

PATIENT
  Age: 61 Year
  Sex: Female
  Weight: 86.167 kg

DRUGS (1)
  1. ZYPREXA [Suspect]
     Indication: DEPRESSION
     Dosage: 2.5 MG, 2/D
     Dates: start: 20030101, end: 20040101

REACTIONS (5)
  - DIABETES MELLITUS [None]
  - DIABETIC COMA [None]
  - INTESTINAL HAEMORRHAGE [None]
  - METABOLIC DISORDER [None]
  - VISION BLURRED [None]
